FAERS Safety Report 5948211-8 (Version None)
Quarter: 2008Q4

REPORT INFORMATION
  Report Type: 
  Country: None (occurrence: None)
  Receive Date: 20081111
  Receipt Date: 20081104
  Transmission Date: 20090506
  Serious: Yes (Hospitalization)
  Sender: FDA-Public Use
  Company Number: JP-AMGEN-US175533

PATIENT
  Sex: Female
  Weight: 53 kg

DRUGS (8)
  1. ENBREL [Suspect]
     Indication: RHEUMATOID ARTHRITIS
     Route: 058
     Dates: start: 20051031, end: 20060316
  2. PREDNISOLONE [Suspect]
     Indication: RHEUMATOID ARTHRITIS
     Route: 048
     Dates: start: 20050401
  3. METHOTREXATE [Suspect]
     Indication: RHEUMATOID ARTHRITIS
     Route: 048
     Dates: start: 20050401
  4. CINAL [Concomitant]
     Route: 048
     Dates: start: 20051219
  5. ZANTAC [Concomitant]
     Route: 048
     Dates: start: 20050627
  6. FOLIAMIN [Concomitant]
     Route: 048
     Dates: start: 20051112
  7. JUVELA [Concomitant]
     Route: 048
     Dates: start: 20051219
  8. LOXONIN [Concomitant]
     Indication: RHEUMATOID ARTHRITIS
     Dosage: 120 MG EVERY 1 DEC
     Route: 048

REACTIONS (2)
  - CELLULITIS STAPHYLOCOCCAL [None]
  - SKULL FRACTURE [None]
